FAERS Safety Report 5684412-4 (Version None)
Quarter: 2008Q1

REPORT INFORMATION
  Report Type: 
  Country: None (occurrence: None)
  Receive Date: 20080328
  Receipt Date: 20080320
  Transmission Date: 20080703
  Serious: Yes (Other)
  Sender: FDA-Public Use
  Company Number: US-JNJFOC-20080305540

PATIENT
  Sex: Female

DRUGS (1)
  1. DOXIL [Suspect]
     Indication: BREAST CANCER RECURRENT
     Route: 042

REACTIONS (2)
  - INFUSION RELATED REACTION [None]
  - OFF LABEL USE [None]
